FAERS Safety Report 5122627-4 (Version None)
Quarter: 2006Q4

REPORT INFORMATION
  Report Type: 
  Country: None (occurrence: None)
  Receive Date: 20061004
  Receipt Date: 20060925
  Transmission Date: 20070319
  Serious: Yes (Hospitalization)
  Sender: FDA-Public Use
  Company Number: WAES 0607CHN00010

PATIENT
  Age: 52 Year
  Sex: Female

DRUGS (5)
  1. COZAAR [Suspect]
     Indication: CARDIAC FAILURE
     Dosage: PO
     Route: 048
     Dates: start: 20031222, end: 20060706
  2. BIFIDOBACTERIUM BIFIDUM (AS DRUG) [Concomitant]
  3. FUROSEMIDE [Concomitant]
  4. METOPROLOL TARTRATE [Concomitant]
  5. SPIRONOLACTONE [Concomitant]

REACTIONS (29)
  - ADENOMYOSIS [None]
  - ALANINE AMINOTRANSFERASE INCREASED [None]
  - ASCITES [None]
  - ASPARTATE AMINOTRANSFERASE INCREASED [None]
  - BILIRUBIN CONJUGATED INCREASED [None]
  - BLOOD BILIRUBIN INCREASED [None]
  - BREATH SOUNDS ABNORMAL [None]
  - CARDIAC ARREST [None]
  - CARDIAC FAILURE [None]
  - CARDIAC MURMUR [None]
  - CARDIOMEGALY [None]
  - CHOLECYSTITIS CHRONIC [None]
  - COMA [None]
  - CONDITION AGGRAVATED [None]
  - CONFUSIONAL STATE [None]
  - CONGESTIVE CARDIOMYOPATHY [None]
  - DIARRHOEA [None]
  - DISEASE RECURRENCE [None]
  - DYSPHORIA [None]
  - ENTERITIS [None]
  - GAMMA-GLUTAMYLTRANSFERASE INCREASED [None]
  - HAEMODIALYSIS [None]
  - HEPATIC CONGESTION [None]
  - INTESTINAL CONGESTION [None]
  - JAUNDICE [None]
  - LETHARGY [None]
  - OEDEMA PERIPHERAL [None]
  - PLEURAL EFFUSION [None]
  - REFUSAL OF TREATMENT BY RELATIVE [None]
